FAERS Safety Report 4670335-6 (Version None)
Quarter: 2005Q2

REPORT INFORMATION
  Report Type: 
  Country: None (occurrence: None)
  Receive Date: 20050519
  Receipt Date: 20050413
  Transmission Date: 20051028
  Serious: No
  Sender: FDA-Public Use
  Company Number: SUS1-2005-00278

PATIENT
  Age: 65 Year
  Sex: Female

DRUGS (14)
  1. FOSRENOL (LANTHANUM CARBONATE) TABLET CHEWABLE [Suspect]
     Indication: HYPERPHOSPHATAEMIA
     Dosage: 500 MG, 3X/DAY:  TID WITH MEALS
     Dates: start: 20050321
  2. ALPHAGAN [Concomitant]
  3. COMBIVENT/GFR/ (IPRATROPIUM BROMIDE, SALBUTAMOL SULFATE) [Concomitant]
  4. FERROUS SULFATE TAB [Concomitant]
  5. HEPARIN [Concomitant]
  6. KAYEXALATE [Concomitant]
  7. PROMETHAZINE (PROMETHAZINE) TABLET [Concomitant]
  8. VENOFER [Concomitant]
  9. PROMATINE (MIDODRINE HYDROCHLORIDE) TABLET [Concomitant]
  10. PANTOPRAZOLE SODIUM [Concomitant]
  11. PYRIDIUM (PHENAZOPYRIDINE HYDROCHLORIDE) [Concomitant]
  12. SIMVASTATIN [Concomitant]
  13. SYNTHROID [Concomitant]
  14. TRUSOPT [Concomitant]

REACTIONS (1)
  - PRURITUS GENERALISED [None]
